FAERS Safety Report 7376138-6 (Version None)
Quarter: 2011Q1

REPORT INFORMATION
  Report Type: 
  Country: None (occurrence: None)
  Receive Date: 20110325
  Receipt Date: 20110316
  Transmission Date: 20110831
  Serious: Yes (Hospitalization)
  Sender: FDA-Public Use
  Company Number: RU-JNJFOC-20090802517

PATIENT
  Sex: Male
  Weight: 60 kg

DRUGS (2)
  1. RISPOLEPT QUICKLET [Suspect]
     Indication: SCHIZOPHRENIA
     Route: 048
  2. QUETIAPINE [Suspect]
     Indication: UNEVALUABLE EVENT
     Route: 048

REACTIONS (5)
  - ANXIETY DISORDER [None]
  - DEPERSONALISATION [None]
  - NEUROLEPTIC MALIGNANT SYNDROME [None]
  - DEREALISATION [None]
  - DYSSOMNIA [None]
